FAERS Safety Report 7569832-5 (Version None)
Quarter: 2011Q2

REPORT INFORMATION
  Report Type: 
  Country: None (occurrence: None)
  Receive Date: 20110624
  Receipt Date: 20110614
  Transmission Date: 20111010
  Serious: Yes (Other)
  Sender: FDA-Public Use
  Company Number: US-JNJFOC-20110606811

PATIENT
  Sex: Female
  Weight: 68.04 kg

DRUGS (4)
  1. SULFASALAZINE [Concomitant]
     Indication: ARTHRITIS
     Route: 048
     Dates: start: 20090101
  2. SYNTHROID [Concomitant]
     Indication: THYROID DISORDER
     Route: 048
     Dates: start: 20060101
  3. REMICADE [Suspect]
     Indication: ANKYLOSING SPONDYLITIS
     Route: 042
     Dates: start: 20090101
  4. CELEBREX [Concomitant]
     Indication: INFLAMMATION
     Route: 048

REACTIONS (4)
  - RHINORRHOEA [None]
  - COLITIS ULCERATIVE [None]
  - FATIGUE [None]
  - RESPIRATORY TRACT CONGESTION [None]
